FAERS Safety Report 5960156-6 (Version None)
Quarter: 2008Q4

REPORT INFORMATION
  Report Type: 
  Country: None (occurrence: None)
  Receive Date: 20081120
  Receipt Date: 20081111
  Transmission Date: 20090506
  Serious: Yes (Hospitalization)
  Sender: FDA-Public Use
  Company Number: US-ELI_LILLY_AND_COMPANY-US200811002401

PATIENT
  Sex: Female
  Weight: 120.18 kg

DRUGS (14)
  1. BYETTA [Suspect]
     Indication: TYPE 2 DIABETES MELLITUS
     Dosage: 5 UG, 2/D
     Route: 058
     Dates: start: 20080701, end: 20080801
  2. GLIPIZIDE [Concomitant]
     Indication: TYPE 2 DIABETES MELLITUS
     Dosage: 20 MG, 2/D
     Route: 048
  3. GLUCOPHAGE [Concomitant]
     Indication: TYPE 2 DIABETES MELLITUS
     Dosage: 1000 MG, EACH MORNING
  4. GLUCOPHAGE [Concomitant]
     Dosage: 1500 MG, EACH EVENING
     Route: 058
  5. NOVOLIN 70/30 [Concomitant]
     Indication: TYPE 2 DIABETES MELLITUS
     Dosage: 70 U, 2/D
     Route: 058
  6. CLONIDINE [Concomitant]
     Indication: HYPERTENSION
     Dosage: 4 MG, DAILY (1/D)
     Route: 048
  7. METOPROLOL TARTRATE [Concomitant]
     Indication: HYPERTENSION
     Dosage: 50 MG, 3/D
     Route: 048
  8. LISINOPRIL [Concomitant]
     Indication: HYPERTENSION
     Dosage: 400 MG, 2/D
     Route: 048
  9. PRAZSOIN HCL [Concomitant]
     Indication: HYPERTENSION
     Dosage: 4 MG, 3/D
     Route: 048
  10. DILTIAZEM HCL [Concomitant]
     Indication: HYPERTENSION
     Dosage: 240 MG, DAILY (1/D)
     Route: 048
  11. SYNTHROID [Concomitant]
     Indication: HYPOTHYROIDISM
     Dosage: 50 UG, DAILY (1/D)
     Route: 048
  12. HYDROCODONE BITARTRATE AND ACETAMINOPHEN [Concomitant]
     Indication: ARTHRALGIA
     Dosage: UNK, AS NEEDED
     Route: 048
  13. NAPROSYN [Concomitant]
     Indication: ARTHRALGIA
     Dosage: 500 MG, AS NEEDED
     Route: 048
  14. CYCLOBENZAPRINE HCL [Concomitant]
     Indication: ARTHRALGIA
     Dosage: 10 MG, AS NEEDED
     Route: 048

REACTIONS (4)
  - ARTHRALGIA [None]
  - BLOOD GLUCOSE INCREASED [None]
  - BLOOD PRESSURE INCREASED [None]
  - WEIGHT DECREASED [None]
